FAERS Safety Report 8847701 (Version 3)
Quarter: 2012Q4

REPORT INFORMATION
  Report Type: 
  Country: CA (occurrence: CA)
  Receive Date: 20121018
  Receipt Date: 20121221
  Transmission Date: 20130627
  Serious: Yes (Death, Other)
  Sender: FDA-Public Use
  Company Number: CA-GILEAD-2012-0062960

PATIENT
  Sex: Male

DRUGS (6)
  1. TENOFOVIR DISOPROXIL FUMARATE [Suspect]
     Indication: HIV INFECTION
     Dosage: 300 mg, Q1Wk
  2. RALTEGRAVIR [Concomitant]
     Dosage: 400 mg, BID
     Route: 048
  3. ETRAVIRINE [Concomitant]
     Indication: HIV INFECTION
     Dosage: 400 mg, UNK
     Route: 048
  4. 3TC [Concomitant]
     Indication: HIV INFECTION
     Dosage: 25 mg, UNK
     Route: 048
  5. CIPRALEX [Concomitant]
     Dosage: 10 mg, QD
     Route: 048
  6. AZITHROMYCIN [Concomitant]
     Dosage: 250 mg, QD
     Route: 048

REACTIONS (6)
  - Renal failure [Fatal]
  - Azotaemia [Fatal]
  - Renal failure chronic [Unknown]
  - Social avoidant behaviour [Unknown]
  - Cachexia [Unknown]
  - Depression [Unknown]
